FAERS Safety Report 21717668 (Version 1)
Quarter: 2022Q4

REPORT INFORMATION
  Report Type: Spontaneous
  Country: US (occurrence: None)
  Receive Date: 20221212
  Receipt Date: 20221212
  Transmission Date: 20230113
  Serious: No
  Sender: FDA-Public Use
  Company Number: None

PATIENT
  Age: 67 Year
  Sex: Male

DRUGS (3)
  1. WARFARIN [Suspect]
     Active Substance: WARFARIN
     Indication: Transient ischaemic attack
     Dosage: FREQUENCY : DAILY;?
     Route: 048
  2. NIRMATRELVIR\RITONAVIR [Suspect]
     Active Substance: NIRMATRELVIR\RITONAVIR
  3. PREDNISONE [Suspect]
     Active Substance: PREDNISONE

REACTIONS (4)
  - Anticoagulation drug level above therapeutic [None]
  - Cerebral haemorrhage [None]
  - Therapy interrupted [None]
  - Cerebrovascular accident [None]

NARRATIVE: CASE EVENT DATE: 20220816
